FAERS Safety Report 10514029 (Version 1)
Quarter: 2014Q4

REPORT INFORMATION
  Report Type: Spontaneous
  Country: US (occurrence: US)
  Receive Date: 20141013
  Receipt Date: 20141013
  Transmission Date: 20150528
  Serious: No
  Sender: FDA-Public Use
  Company Number: US-MALLINCKRODT-T201401803

PATIENT
  Sex: Male
  Weight: 56.69 kg

DRUGS (1)
  1. MIXED AMPHETAMINE SALTS [Suspect]
     Active Substance: AMPHETAMINE ASPARTATE\AMPHETAMINE SULFATE\DEXTROAMPHETAMINE SACCHARATE\DEXTROAMPHETAMINE SULFATE
     Indication: ATTENTION DEFICIT/HYPERACTIVITY DISORDER
     Dosage: 5 MG, TID
     Route: 048
     Dates: start: 20140325, end: 20140403

REACTIONS (2)
  - Mood altered [Recovered/Resolved]
  - Feeling hot [Recovered/Resolved]
